FAERS Safety Report 18284259 (Version 5)
Quarter: 2020Q4

REPORT INFORMATION
  Report Type: Report from Study
  Country: CA (occurrence: CA)
  Receive Date: 20200918
  Receipt Date: 20201001
  Transmission Date: 20210113
  Serious: Yes (Death, Life-Threatening, Hospitalization, Other)
  Sender: FDA-Public Use
  Company Number: CA-GILEAD-2020-0495449

PATIENT
  Age: 75 Year
  Sex: Male
  Weight: 69.9 kg

DRUGS (14)
  1. ACETAMINOPHEN. [Concomitant]
     Active Substance: ACETAMINOPHEN
  2. BUSCOPAN [Concomitant]
     Active Substance: BUTYLSCOPOLAMINE BROMIDE
  3. DIMENHYDRINATE. [Concomitant]
     Active Substance: DIMENHYDRINATE
  4. TAMSULOSIN [Concomitant]
     Active Substance: TAMSULOSIN
  5. SALONPAS TOPICAL [Concomitant]
  6. TRAZODONE [Concomitant]
     Active Substance: TRAZODONE HYDROCHLORIDE
  7. XARELTO [Concomitant]
     Active Substance: RIVAROXABAN
  8. LOPERAMIDE [Concomitant]
     Active Substance: LOPERAMIDE
  9. METRONIDAZOLE. [Concomitant]
     Active Substance: METRONIDAZOLE
  10. AXICABTAGENE CILOLEUCEL [Suspect]
     Active Substance: AXICABTAGENE CILOLEUCEL
     Indication: NON-HODGKIN^S LYMPHOMA UNSPECIFIED HISTOLOGY AGGRESSIVE REFRACTORY
     Dosage: UNK
     Route: 042
     Dates: start: 20181015, end: 20181015
  11. CHLORHEXIDINE [Concomitant]
     Active Substance: CHLORHEXIDINE
  12. FILGRASTIM [Concomitant]
     Active Substance: FILGRASTIM
  13. POTASSIUM CHLORIDE. [Concomitant]
     Active Substance: POTASSIUM CHLORIDE
  14. VITAMIN D3 [Concomitant]
     Active Substance: CHOLECALCIFEROL

REACTIONS (3)
  - Cholangitis [Fatal]
  - Sepsis [Fatal]
  - Myelodysplastic syndrome [Not Recovered/Not Resolved]

NARRATIVE: CASE EVENT DATE: 20200817
